FAERS Safety Report 5610310-8 (Version None)
Quarter: 2008Q1

REPORT INFORMATION
  Report Type: 
  Country: None (occurrence: None)
  Receive Date: 20080128
  Receipt Date: 20080114
  Transmission Date: 20080703
  Serious: Yes (Other)
  Sender: FDA-Public Use
  Company Number: STI-2008-00180

PATIENT
  Sex: Female

DRUGS (1)
  1. HYDROCORTISONE [Suspect]
     Dosage: ORAL
     Route: 048

REACTIONS (16)
  - ABDOMINAL PAIN UPPER [None]
  - AGITATION [None]
  - ALOPECIA [None]
  - ARTHRALGIA [None]
  - CHEST PAIN [None]
  - CONFUSIONAL STATE [None]
  - CONSTIPATION [None]
  - COUGH [None]
  - DIARRHOEA [None]
  - FATIGUE [None]
  - HEADACHE [None]
  - INSOMNIA [None]
  - MOOD SWINGS [None]
  - PHARYNGOLARYNGEAL PAIN [None]
  - SPUTUM DISCOLOURED [None]
  - WEIGHT INCREASED [None]
